FAERS Safety Report 9557926 (Version 1)
Quarter: 2013Q3

REPORT INFORMATION
  Report Type: Spontaneous
  Country: US (occurrence: None)
  Receive Date: 20130724
  Receipt Date: 20130724
  Transmission Date: 20140515
  Serious: Yes (Hospitalization, Other)
  Sender: FDA-Public Use
  Company Number: PHEH2012US017108

PATIENT
  Age: 60 Year
  Sex: Female

DRUGS (17)
  1. DIOVAN HCT [Suspect]
     Indication: HYPERTENSION
  2. TORASEMIDE [Suspect]
  3. ASPIRIN (ACETYLSALICYLIC ACID) [Concomitant]
  4. LYRICA (PREGABALIN) [Concomitant]
  5. CITALOPRAM (CITALOPRAM) [Concomitant]
  6. METOPROLOL (METOPROLOL) [Concomitant]
  7. LEVOTHYROXINE (LEVOTHYROXINE) [Concomitant]
  8. OMEPRAZOLE (OMEPRAZOLE) [Concomitant]
  9. VITAMINS (VITAMINS NOS) [Concomitant]
  10. ABILIFY (ARIPIPRAZOLE) [Concomitant]
  11. XANAX (ALPRAZOLAM) [Concomitant]
  12. VALACICLOVIR (VALACICLOVIR) [Concomitant]
  13. ADVAIR (FLUTICASONE PROPIONATE, SALMETEROL XINAFOATE) [Concomitant]
  14. ALBUTEROL SULFATE (SALBUTAMOL SULFATE) [Concomitant]
  15. ROBITUSSIN W/ CODEIN (GUAIFENESIN/CODEIN) [Concomitant]
  16. OXYGEN THERAPY (NO INGREDIENTS/SUBSTANCES) [Concomitant]
  17. SPIRIVA (TIOTROPIUM BROMIDE) [Concomitant]

REACTIONS (6)
  - Dehydration [None]
  - Blood pressure increased [None]
  - Feeling abnormal [None]
  - Dyspnoea [None]
  - Malaise [None]
  - Memory impairment [None]
